FAERS Safety Report 22212789 (Version 5)
Quarter: 2025Q2

REPORT INFORMATION
  Report Type: Report from Study
  Country: BE (occurrence: BE)
  Receive Date: 20230414
  Receipt Date: 20250624
  Transmission Date: 20250717
  Serious: Yes (Other)
  Sender: CHIESI
  Company Number: BE-AMRYT PHARMACEUTICALS DAC-AEGR006252

PATIENT
  Sex: Female
  Weight: 63.3 kg

DRUGS (10)
  1. METRELEPTIN [Suspect]
     Active Substance: METRELEPTIN
     Indication: Congenital generalised lipodystrophy
     Dosage: 10 MILLIGRAM, QD
     Route: 058
     Dates: start: 200111, end: 2017
  2. METRELEPTIN [Suspect]
     Active Substance: METRELEPTIN
     Route: 058
     Dates: start: 2017, end: 2020
  3. METRELEPTIN [Suspect]
     Active Substance: METRELEPTIN
     Route: 058
     Dates: end: 201709
  4. METRELEPTIN [Suspect]
     Active Substance: METRELEPTIN
     Dosage: 10 MILLIGRAM, QD
     Dates: start: 2017
  5. JARDIANCE [Concomitant]
     Active Substance: EMPAGLIFLOZIN
     Indication: Type 2 diabetes mellitus
     Dosage: 10 MILLIGRAM, QD
     Route: 048
     Dates: start: 20230112
  6. ETHINYL ESTRADIOL\LEVONORGESTREL [Concomitant]
     Active Substance: ETHINYL ESTRADIOL\LEVONORGESTREL
     Indication: Contraception
     Dosage: 30 UNK, QD
     Route: 048
     Dates: start: 2009
  7. ATORVASTATIN [Concomitant]
     Active Substance: ATORVASTATIN
     Indication: Blood cholesterol increased
     Dosage: 10 MILLIGRAM, QD
     Route: 048
  8. ATORVASTATIN [Concomitant]
     Active Substance: ATORVASTATIN
  9. ATORVASTATIN [Concomitant]
     Active Substance: ATORVASTATIN
     Indication: Hypertriglyceridaemia
     Dosage: 20 MILLIGRAM, QD
     Route: 048
     Dates: start: 20231215
  10. TOUJEO [Concomitant]
     Active Substance: INSULIN GLARGINE
     Indication: Type 2 diabetes mellitus
     Dosage: 16 INTERNATIONAL UNIT, QD
     Route: 058
     Dates: start: 20230330

REACTIONS (10)
  - Diabetes mellitus [Unknown]
  - Blood glucose abnormal [Unknown]
  - Glycosylated haemoglobin increased [Unknown]
  - Blood triglycerides increased [Unknown]
  - Hypertriglyceridaemia [Unknown]
  - Insulin resistance [Unknown]
  - Drug specific antibody present [Unknown]
  - Neutralising antibodies positive [Unknown]
  - Drug ineffective [Unknown]
  - Diet noncompliance [Unknown]
